FAERS Safety Report 23260150 (Version 4)
Quarter: 2024Q3

REPORT INFORMATION
  Report Type: Spontaneous
  Country: JP (occurrence: JP)
  Receive Date: 20231204
  Receipt Date: 20240813
  Transmission Date: 20241016
  Serious: Yes (Other)
  Sender: NOVARTIS
  Company Number: JP-002147023-NVSJ2023JP017186

PATIENT
  Age: 63 Year
  Sex: Female

DRUGS (6)
  1. MAYZENT [Suspect]
     Active Substance: SIPONIMOD
     Indication: Secondary progressive multiple sclerosis
     Dosage: UNK
     Route: 048
     Dates: start: 202210
  2. KESIMPTA [Suspect]
     Active Substance: OFATUMUMAB
     Indication: Secondary progressive multiple sclerosis
     Dosage: UNK
     Route: 058
     Dates: start: 202305
  3. INTERFERON BETA-1A [Concomitant]
     Active Substance: INTERFERON BETA-1A
     Indication: Secondary progressive multiple sclerosis
     Dosage: UNK
     Route: 065
  4. INTERFERON BETA-1B [Concomitant]
     Active Substance: INTERFERON BETA-1B
     Indication: Secondary progressive multiple sclerosis
     Dosage: UNK
     Route: 065
     Dates: start: 200501
  5. TACROLIMUS [Concomitant]
     Active Substance: TACROLIMUS
     Indication: Secondary progressive multiple sclerosis
     Dosage: UNK
     Route: 065
     Dates: end: 202307
  6. METHYLPREDNISOLONE [Concomitant]
     Active Substance: METHYLPREDNISOLONE
     Indication: Secondary progressive multiple sclerosis
     Dosage: UNK
     Route: 065
     Dates: end: 202309

REACTIONS (5)
  - Multiple sclerosis [Unknown]
  - Monoplegia [Unknown]
  - Oedema peripheral [Unknown]
  - Mental impairment [Unknown]
  - Multiple sclerosis relapse [Recovered/Resolved]
